FAERS Safety Report 8570211-2 (Version None)
Quarter: 2012Q3

REPORT INFORMATION
  Report Type: 
  Country: None (occurrence: None)
  Receive Date: 20120803
  Receipt Date: 20120731
  Transmission Date: 20120928
  Serious: Yes (Other)
  Sender: FDA-Public Use
  Company Number: IT-GILEAD-2012-0059095

PATIENT
  Age: 22 Year
  Sex: Male

DRUGS (5)
  1. TRUVADA [Suspect]
     Indication: HEPATITIS B
     Dosage: 1 UNK, QD
     Route: 048
     Dates: start: 20080701
  2. DARUNAVIR ETHANOLATE [Concomitant]
     Dosage: 1200 MG, QD
  3. ENFUVIRTIDE [Concomitant]
     Dosage: 180 MG, QD
  4. RITONAVIR [Concomitant]
     Dosage: 200 MG, QD
  5. RALTEGRAVIR [Concomitant]
     Dosage: 800 MG, QD

REACTIONS (2)
  - GENOTYPE DRUG RESISTANCE TEST POSITIVE [None]
  - VIROLOGIC FAILURE [None]
